FAERS Safety Report 8922947 (Version 1)
Quarter: 2012Q4

REPORT INFORMATION
  Report Type: Spontaneous
  Country: US (occurrence: None)
  Receive Date: 20121115
  Receipt Date: 20121115
  Transmission Date: 20130627
  Serious: No
  Sender: FDA-Public Use
  Company Number: US-009853

PATIENT
  Age: 47 Year
  Sex: Female
  Weight: 67.13 kg

DRUGS (4)
  1. PICOLAX [Suspect]
     Indication: COLONOSCOPY
     Dosage: night before and six hours later as directed
     Dates: start: 20121011
  2. CYMBALTA [Concomitant]
  3. DEXLANSOPRAZOLE [Concomitant]
  4. SYNTHROID [Concomitant]

REACTIONS (1)
  - Drug ineffective [None]
